FAERS Safety Report 7605491-0 (Version None)
Quarter: 2011Q3

REPORT INFORMATION
  Report Type: 
  Country: None (occurrence: None)
  Receive Date: 20110713
  Receipt Date: 20110706
  Transmission Date: 20111222
  Serious: Yes (Other)
  Sender: FDA-Public Use
  Company Number: US-PFIZER INC-2011151734

PATIENT
  Sex: Female
  Weight: 77 kg

DRUGS (1)
  1. XALATAN [Suspect]
     Indication: OPEN ANGLE GLAUCOMA
     Dosage: 1 GTT IN EACH EYE, DAILY
     Dates: start: 20110225, end: 20110701

REACTIONS (2)
  - MACULAR OEDEMA [None]
  - EYE PAIN [None]
